FAERS Safety Report 7121203-1 (Version None)
Quarter: 2010Q4

REPORT INFORMATION
  Report Type: 
  Country: None (occurrence: None)
  Receive Date: 20101124
  Receipt Date: 20101117
  Transmission Date: 20110411
  Serious: Yes (Other)
  Sender: FDA-Public Use
  Company Number: PHHY2010BR26794

PATIENT
  Sex: Female

DRUGS (1)
  1. EXELON [Suspect]
     Dosage: 9MG/5CM2, 1 PATCH PER DAY
     Route: 062

REACTIONS (8)
  - AGITATION [None]
  - APATHY [None]
  - APPLICATION SITE HYPERSENSITIVITY [None]
  - DELIRIUM [None]
  - FATIGUE [None]
  - HALLUCINATION [None]
  - SLEEP DISORDER [None]
  - SOMNOLENCE [None]
